FAERS Safety Report 18577393 (Version 1)
Quarter: 2020Q4

REPORT INFORMATION
  Report Type: Report from Study
  Country: None (occurrence: BE)
  Receive Date: 20201203
  Receipt Date: 20201203
  Transmission Date: 20210114
  Serious: Yes (Death)
  Sender: FDA-Public Use
  Company Number: BE-ABBVIE-20K-013-3676881-00

PATIENT
  Age: 71 Year
  Sex: Male
  Weight: 90 kg

DRUGS (3)
  1. PROLOPA 125 [Concomitant]
     Indication: PARKINSON^S DISEASE
     Dosage: FORM STRENGTH: 100MG/25MG, ON ARRIVAL OF HOME NURSES
     Route: 048
  2. DUODOPA [Suspect]
     Active Substance: CARBIDOPA\LEVODOPA
     Indication: PARKINSON^S DISEASE
     Dosage: UNKNOWN DOSAGES
     Route: 050
     Dates: start: 20171030, end: 20200930
  3. DUODOPA [Suspect]
     Active Substance: CARBIDOPA\LEVODOPA

REACTIONS (1)
  - Death [Fatal]
